FAERS Safety Report 5844916-8 (Version None)
Quarter: 2008Q3

REPORT INFORMATION
  Report Type: 
  Country: None (occurrence: None)
  Receive Date: 20080814
  Receipt Date: 20080804
  Transmission Date: 20090109
  Serious: Yes (Hospitalization)
  Sender: FDA-Public Use
  Company Number: US-KINGPHARMUSA00001-K200800932

PATIENT

DRUGS (3)
  1. CYTOMEL [Suspect]
     Indication: THYROID DISORDER
     Dosage: 5 MCG, BID
     Route: 048
     Dates: start: 19930101
  2. ARMOUR THYROID [Concomitant]
     Indication: THYROID DISORDER
     Dosage: UNK, QD
     Route: 048
  3. HYDROCODONE BITARTRATE [Concomitant]
     Indication: PAIN
     Dosage: UNK, PRN
     Route: 048
     Dates: start: 20080501

REACTIONS (5)
  - DIARRHOEA [None]
  - PAIN [None]
  - POLLAKIURIA [None]
  - URINARY TRACT INFECTION [None]
  - WEIGHT DECREASED [None]
